FAERS Safety Report 9688632 (Version 1)
Quarter: 2013Q4

REPORT INFORMATION
  Report Type: Spontaneous
  Country: PK (occurrence: None)
  Receive Date: 20131113
  Receipt Date: 20131113
  Transmission Date: 20140711
  Serious: Yes (Death, Other)
  Sender: FDA-Public Use
  Company Number: KAD201311-001496

PATIENT
  Sex: 0

DRUGS (4)
  1. INTERFERON ALFACON-1 [Suspect]
     Indication: HEPATITIS C
  2. INTERFERON ALFACON-1 [Suspect]
     Indication: LIVER DISORDER
  3. RIBAVIRIN [Suspect]
     Indication: HEPATITIS C
  4. RIBAVIRIN [Suspect]
     Indication: LIVER DISORDER

REACTIONS (2)
  - Hepatocellular carcinoma [None]
  - Hepatic encephalopathy [None]
